FAERS Safety Report 16051773 (Version 1)
Quarter: 2019Q1

REPORT INFORMATION
  Report Type: Report from Study
  Country: CA (occurrence: CA)
  Receive Date: 20190308
  Receipt Date: 20190308
  Transmission Date: 20190418
  Serious: Yes (Other)
  Sender: FDA-Public Use
  Company Number: CA-TEVA-2019-CA-1020280

PATIENT
  Age: 42 Year
  Sex: Female

DRUGS (16)
  1. SIMPONI [Concomitant]
     Active Substance: GOLIMUMAB
     Indication: PSORIASIS
     Route: 065
  2. METHOTREXATE. [Suspect]
     Active Substance: METHOTREXATE
     Indication: PRODUCT USED FOR UNKNOWN INDICATION
     Route: 065
  3. COSENTYX [Suspect]
     Active Substance: SECUKINUMAB
     Route: 058
  4. VITAMIN C [Concomitant]
     Active Substance: ASCORBIC ACID
     Indication: PRODUCT USED FOR UNKNOWN INDICATION
     Route: 065
  5. ACETAMINOPHEN/CHLORPHENAMINE MALEATE/DEXTROMETHORPHAN HYDROBROMIDE/PSE [Concomitant]
     Indication: PRODUCT USED FOR UNKNOWN INDICATION
     Route: 065
  6. COSENTYX [Suspect]
     Active Substance: SECUKINUMAB
     Route: 058
  7. COSENTYX [Suspect]
     Active Substance: SECUKINUMAB
     Route: 058
  8. ENBREL [Concomitant]
     Active Substance: ETANERCEPT
     Indication: PSORIASIS
     Route: 065
  9. COSENTYX [Suspect]
     Active Substance: SECUKINUMAB
     Route: 058
  10. COSENTYX [Suspect]
     Active Substance: SECUKINUMAB
     Route: 058
  11. COSENTYX [Suspect]
     Active Substance: SECUKINUMAB
     Indication: PSORIASIS
     Route: 058
  12. COSENTYX [Suspect]
     Active Substance: SECUKINUMAB
     Route: 058
  13. COSENTYX [Suspect]
     Active Substance: SECUKINUMAB
     Route: 058
  14. COSENTYX [Suspect]
     Active Substance: SECUKINUMAB
     Route: 058
  15. COSENTYX [Suspect]
     Active Substance: SECUKINUMAB
     Route: 058
  16. STELARA [Concomitant]
     Active Substance: USTEKINUMAB
     Indication: PSORIASIS
     Route: 065

REACTIONS (12)
  - Dysuria [Recovering/Resolving]
  - Pneumonia [Recovering/Resolving]
  - Rhinorrhoea [Recovering/Resolving]
  - Inappropriate schedule of product administration [Recovering/Resolving]
  - Headache [Recovering/Resolving]
  - Malaise [Recovering/Resolving]
  - Sinus congestion [Recovering/Resolving]
  - Pollakiuria [Recovering/Resolving]
  - Eye infection [Recovering/Resolving]
  - Fungal infection [Recovering/Resolving]
  - Oropharyngeal pain [Recovering/Resolving]
  - Sinusitis [Recovering/Resolving]
